FAERS Safety Report 15202430 (Version 1)
Quarter: 2018Q3

REPORT INFORMATION
  Report Type: Report from Study
  Country: IT (occurrence: IT)
  Receive Date: 20180726
  Receipt Date: 20180726
  Transmission Date: 20181010
  Serious: Yes (Hospitalization)
  Sender: FDA-Public Use
  Company Number: IT-TEVA-2018-IT-930013

PATIENT
  Age: 82 Year
  Sex: Female

DRUGS (8)
  1. METFORMIN [Suspect]
     Active Substance: METFORMIN HYDROCHLORIDE
     Indication: DIABETES MELLITUS
     Route: 048
     Dates: start: 20180101, end: 20180614
  2. ACARBOSE. [Concomitant]
     Active Substance: ACARBOSE
  3. ATORVASTATIN [Concomitant]
     Active Substance: ATORVASTATIN
  4. CARDICOR 1,25 MG COMPRESSE RIVESTITE CON FILM [Concomitant]
  5. LASIX [Concomitant]
     Active Substance: FUROSEMIDE
  6. ALIFLUS 25 MICROGRAMMI/50 MICROGRAMMI/DOSE SOSPENSIONE PRESSURIZZATA P [Concomitant]
  7. LANSOPRAZOLE. [Concomitant]
     Active Substance: LANSOPRAZOLE
  8. CLOPIDOGREL [Concomitant]
     Active Substance: CLOPIDOGREL BISULFATE

REACTIONS (3)
  - Blood lactic acid increased [Recovered/Resolved]
  - Fatigue [Recovered/Resolved]
  - Toxicity to various agents [Recovered/Resolved]

NARRATIVE: CASE EVENT DATE: 20180614
